FAERS Safety Report 7503185-3 (Version None)
Quarter: 2011Q2

REPORT INFORMATION
  Report Type: 
  Country: None (occurrence: None)
  Receive Date: 20110525
  Receipt Date: 20101108
  Transmission Date: 20111010
  Serious: No
  Sender: FDA-Public Use
  Company Number: US-NOVEN-ALL1-2010-05269

PATIENT
  Sex: Male
  Weight: 37.188 kg

DRUGS (4)
  1. DAYTRANA [Suspect]
     Dosage: 40 MG, 1X/DAY:QD (TWO 20 MG PATCHES)
     Route: 062
     Dates: start: 20100915, end: 20101002
  2. DAYTRANA [Suspect]
     Dosage: 40 MG, 1X/DAY:QD (TWO 20 MG PATCHES)
     Route: 062
     Dates: end: 20100601
  3. DAYTRANA [Suspect]
     Dosage: 30 MG, 1X/DAY:QD
     Route: 062
     Dates: start: 20100601, end: 20100914
  4. DAYTRANA [Suspect]
     Dosage: 40 MG, 1X/DAY:QD (TWO 20 MG PATCHES)
     Route: 062
     Dates: start: 20101007

REACTIONS (4)
  - OVERDOSE [None]
  - DRUG INEFFECTIVE [None]
  - PRODUCT QUALITY ISSUE [None]
  - APPLICATION SITE PRURITUS [None]
